FAERS Safety Report 5708719-7 (Version None)
Quarter: 2008Q2

REPORT INFORMATION
  Report Type: 
  Country: None (occurrence: None)
  Receive Date: 20080410
  Receipt Date: 20080327
  Transmission Date: 20081010
  Serious: Yes (Life-Threatening)
  Sender: FDA-Public Use
  Company Number: THYM-1000656

PATIENT
  Age: 24 Year
  Sex: Female

DRUGS (8)
  1. THYMOGLOBULIN [Suspect]
     Indication: BONE MARROW TRANSPLANT
     Dosage: 250 MG, QD; INTRAVENOUS
     Route: 042
     Dates: start: 20080120
  2. CYCLOPHOSPHAMIDE [Suspect]
     Indication: BONE MARROW TRANSPLANT
     Dosage: 500 MG, QD; INTRAVENOUS
     Route: 042
     Dates: start: 20080118
  3. FLUDARA [Suspect]
     Indication: BONE MARROW TRANSPLANT
     Dosage: 50 MG, QD; INTRAVENOUS
     Route: 042
     Dates: start: 20080118
  4. CEFTAZIDIME SODIUM [Concomitant]
  5. AMIKACIN [Concomitant]
  6. VANCOMYCIN [Concomitant]
  7. TIBERAL (ORNIDAZOLE) [Concomitant]
  8. PRIMAXIN [Concomitant]

REACTIONS (2)
  - ANAPHYLACTIC SHOCK [None]
  - RENAL FAILURE [None]
